FAERS Safety Report 23859527 (Version 3)
Quarter: 2024Q3

REPORT INFORMATION
  Report Type: Spontaneous
  Country: DE (occurrence: DE)
  Receive Date: 20240515
  Receipt Date: 20240701
  Transmission Date: 20241017
  Serious: Yes (Life-Threatening)
  Sender: FRESENIUS KABI
  Company Number: DE-Accord-422535

PATIENT
  Age: 48 Year
  Sex: Male

DRUGS (12)
  1. LEUCOVORIN [Suspect]
     Active Substance: LEUCOVORIN\LEUCOVORIN CALCIUM
     Indication: Oesophageal adenocarcinoma
  2. LEUCOVORIN [Suspect]
     Active Substance: LEUCOVORIN\LEUCOVORIN CALCIUM
     Dates: start: 20231212, end: 20240201
  3. LEUCOVORIN [Suspect]
     Active Substance: LEUCOVORIN\LEUCOVORIN CALCIUM
     Dates: start: 2024
  4. OXALIPLATIN [Suspect]
     Active Substance: OXALIPLATIN
     Indication: Oesophageal adenocarcinoma
     Route: 042
     Dates: start: 20231212, end: 20240201
  5. OXALIPLATIN [Suspect]
     Active Substance: OXALIPLATIN
     Dates: start: 20240207, end: 20240306
  6. OXALIPLATIN [Suspect]
     Active Substance: OXALIPLATIN
     Dates: start: 2024, end: 20240306
  7. FLUOROURACIL [Suspect]
     Active Substance: FLUOROURACIL
     Indication: Oesophageal adenocarcinoma
  8. FLUOROURACIL [Suspect]
     Active Substance: FLUOROURACIL
     Dates: start: 20231212, end: 20240201
  9. FLUOROURACIL [Suspect]
     Active Substance: FLUOROURACIL
     Dates: start: 2024
  10. TISLELIZUMAB [Concomitant]
     Active Substance: TISLELIZUMAB
     Indication: Oesophageal adenocarcinoma
     Dates: start: 20240207
  11. TISLELIZUMAB [Concomitant]
     Active Substance: TISLELIZUMAB
     Indication: Oesophageal adenocarcinoma
     Dosage: FOA - SOLUTION FOR SOLUTION FOR INFUSION
     Dates: start: 20231212, end: 20240201
  12. TISLELIZUMAB [Concomitant]
     Active Substance: TISLELIZUMAB
     Dosage: SOLUTION FOR INFUSION
     Dates: start: 2024

REACTIONS (1)
  - Neutrophil count decreased [Recovered/Resolved]

NARRATIVE: CASE EVENT DATE: 20240131
